FAERS Safety Report 5099064-4 (Version None)
Quarter: 2006Q3

REPORT INFORMATION
  Report Type: 
  Country: None (occurrence: None)
  Receive Date: 20060731
  Receipt Date: 20060227
  Transmission Date: 20061208
  Serious: Yes (Hospitalization)
  Sender: FDA-Public Use
  Company Number: 221879

PATIENT
  Age: 73 Year
  Sex: Male
  Weight: 59.9 kg

DRUGS (5)
  1. RITUXAN [Suspect]
     Indication: MANTLE CELL LYMPHOMA
     Dosage: 810 MG, SINGLE, INTRAVENOUS
     Route: 042
     Dates: start: 20060123, end: 20060123
  2. FLUDARABINE PHOSPHATE [Concomitant]
  3. TRIMETHOPRIM + SULFAMETHOXAZOLE [Concomitant]
  4. ALLOPURINOL [Concomitant]
  5. ACYCLOVIR [Concomitant]

REACTIONS (2)
  - RASH MACULO-PAPULAR [None]
  - SERUM SICKNESS [None]
